FAERS Safety Report 9602381 (Version 1)
Quarter: 2013Q4

REPORT INFORMATION
  Report Type: Spontaneous
  Country: US (occurrence: US)
  Receive Date: 20131007
  Receipt Date: 20131007
  Transmission Date: 20140711
  Serious: No
  Sender: FDA-Public Use
  Company Number: US-GLAXOSMITHKLINE-A1038757A

PATIENT
  Sex: 0

DRUGS (4)
  1. BENLYSTA [Suspect]
     Indication: SYSTEMIC LUPUS ERYTHEMATOSUS
     Route: 042
     Dates: start: 20130523, end: 20130620
  2. MEDROL [Concomitant]
  3. PLAQUENIL [Concomitant]
  4. FOLIC ACID [Concomitant]

REACTIONS (4)
  - Migraine [Not Recovered/Not Resolved]
  - Stomatitis [Unknown]
  - Cheilitis [Unknown]
  - Skin ulcer [Unknown]
